FAERS Safety Report 4536835-4 (Version None)
Quarter: 2004Q4

REPORT INFORMATION
  Report Type: 
  Country: None (occurrence: None)
  Receive Date: 20041223
  Receipt Date: 20041007
  Transmission Date: 20050328
  Serious: Yes (Hospitalization, Other)
  Sender: FDA-Public Use
  Company Number: US-GLAXOSMITHKLINE-A0529019A

PATIENT
  Age: 68 Year
  Sex: Female
  Weight: 60.7 kg

DRUGS (10)
  1. AVANDIA [Suspect]
     Indication: DIABETES MELLITUS NON-INSULIN-DEPENDENT
     Dosage: 8MG PER DAY
     Route: 048
     Dates: end: 20040913
  2. BENAZEPRIL HCL [Concomitant]
     Indication: HYPERTENSION
     Dosage: 20MG PER DAY
  3. PLAQUENIL [Concomitant]
     Indication: DRUG USE FOR UNKNOWN INDICATION
     Dosage: 200MG ALTERNATE DAYS
  4. LESCOL XL [Concomitant]
     Indication: BLOOD CHOLESTEROL INCREASED
     Dosage: 80MG PER DAY
  5. POTASSIUM [Concomitant]
     Indication: DRUG USE FOR UNKNOWN INDICATION
     Dosage: 10MEQ ALTERNATE DAYS
  6. LASIX [Concomitant]
     Indication: HYPERTENSION
     Dosage: 40MG PER DAY
  7. SPIRONOLACTONE [Concomitant]
     Indication: HYPERTENSION
     Dosage: 25MG PER DAY
     Dates: start: 20040520, end: 20040913
  8. CLONAZEPAM [Concomitant]
     Indication: SLEEP DISORDER
     Dosage: 1MG AT NIGHT
  9. PREMARIN [Concomitant]
     Indication: HORMONE REPLACEMENT THERAPY
     Dosage: .625MG ALTERNATE DAYS
  10. QUININE SULFATE [Concomitant]
     Indication: MUSCLE CRAMP
     Dosage: 324MG AT NIGHT

REACTIONS (5)
  - CARDIAC FAILURE CONGESTIVE [None]
  - DYSPNOEA [None]
  - FLUID RETENTION [None]
  - OEDEMA PERIPHERAL [None]
  - PULMONARY HYPERTENSION [None]
